FAERS Safety Report 16644924 (Version 3)
Quarter: 2019Q3

REPORT INFORMATION
  Report Type: Report from Study
  Country: US (occurrence: US)
  Receive Date: 20190729
  Receipt Date: 20190917
  Transmission Date: 20191004
  Serious: No
  Sender: FDA-Public Use
  Company Number: US-SA-2019SA202538

PATIENT
  Age: 60 Year
  Sex: Female

DRUGS (2)
  1. DUPILUMAB [Suspect]
     Active Substance: DUPILUMAB
     Indication: DERMATITIS ATOPIC
     Dosage: 600 MG, 1X
     Route: 058
     Dates: start: 20190518, end: 20190518
  2. DUPILUMAB [Suspect]
     Active Substance: DUPILUMAB
     Dosage: 300 MG, QOW
     Route: 058
     Dates: start: 20190601

REACTIONS (6)
  - Tremor [Unknown]
  - Anxiety [Unknown]
  - Incorrect dose administered [Unknown]
  - Overgrowth bacterial [Unknown]
  - Wrong technique in device usage process [Unknown]
  - Skin infection [Unknown]

NARRATIVE: CASE EVENT DATE: 20190727
